FAERS Safety Report 16182568 (Version 8)
Quarter: 2021Q2

REPORT INFORMATION
  Report Type: Other
  Country: JP (occurrence: JP)
  Receive Date: 20190411
  Receipt Date: 20210608
  Transmission Date: 20210716
  Serious: Yes (Other)
  Sender: FDA-Public Use
  Company Number: JP-ROCHE-2300308

PATIENT
  Age: 80 Year
  Sex: Male
  Weight: 62.5 kg

DRUGS (1)
  1. ATEZOLIZUMAB. [Suspect]
     Active Substance: ATEZOLIZUMAB
     Indication: NON-SMALL CELL LUNG CANCER
     Route: 041
     Dates: start: 20190218, end: 20190513

REACTIONS (4)
  - Arthritis [Recovering/Resolving]
  - Arthritis [Recovering/Resolving]
  - Radiation pneumonitis [Recovering/Resolving]
  - Antinuclear antibody increased [Unknown]

NARRATIVE: CASE EVENT DATE: 20190401
